FAERS Safety Report 9153651 (Version 1)
Quarter: 2013Q1

REPORT INFORMATION
  Report Type: Spontaneous
  Country: DK (occurrence: None)
  Receive Date: 20130205
  Receipt Date: 20130205
  Transmission Date: 20140127
  Serious: Yes (Other)
  Sender: FDA-Public Use
  Company Number: 2013MA000891

PATIENT
  Age: 42 Year
  Sex: Female

DRUGS (5)
  1. METOCLOPRAMIDE ORAL SOLUTION USP, EQ. 5 MG BASE/5 ML (ALPHARMA) (METOCLOPRAMIDE) [Suspect]
     Dosage: IV NOS.
     Route: 042
     Dates: start: 20130116, end: 20130116
  2. BUSCOPAN [Suspect]
     Dosage: IV NOS
     Route: 042
     Dates: start: 20130116, end: 20130116
  3. MALTODEXTRIN [Suspect]
     Dosage: IV NOS
     Route: 042
     Dates: start: 20130116, end: 20130116
  4. MANNITOL [Suspect]
     Dosage: IV NOS
     Route: 042
     Dates: start: 20130116, end: 20130116
  5. DOTAREM [Suspect]
     Dosage: IV NOS
     Route: 042
     Dates: start: 20130116, end: 20130116

REACTIONS (2)
  - Rash erythematous [None]
  - Dyspnoea [None]
